FAERS Safety Report 9506194 (Version 3)
Quarter: 2014Q1

REPORT INFORMATION
  Report Type: Spontaneous
  Country: US (occurrence: None)
  Receive Date: 20130301
  Receipt Date: 20140304
  Transmission Date: 20141002
  Serious: Yes (Hospitalization, Other)
  Sender: FDA-Public Use
  Company Number: RB-45952-2012

PATIENT
  Sex: Female

DRUGS (3)
  1. SUBOXONE 8 MG [Suspect]
     Indication: DRUG DEPENDENCE
     Dosage: ONE AND A HALF 8 MG
     Route: 064
     Dates: start: 201112, end: 201201
  2. SUBUTEX 8 MG [Suspect]
     Indication: DRUG DEPENDENCE
     Dosage: ONE AND HALF 8 MG
     Route: 064
     Dates: start: 201201, end: 20120902
  3. ZOLOFT [Suspect]
     Indication: PRODUCT USED FOR UNKNOWN INDICATION
     Route: 064
     Dates: start: 201202, end: 20120902

REACTIONS (2)
  - Foetal exposure during pregnancy [None]
  - Drug withdrawal syndrome neonatal [None]
